FAERS Safety Report 21647192 (Version 1)
Quarter: 2022Q4

REPORT INFORMATION
  Report Type: Spontaneous
  Country: CA (occurrence: CA)
  Receive Date: 20221127
  Receipt Date: 20221127
  Transmission Date: 20230113
  Serious: Yes (Hospitalization)
  Sender: FDA-Public Use
  Company Number: CA-JNJFOC-20221155319

PATIENT
  Age: 28 Year
  Sex: Female

DRUGS (11)
  1. REMICADE [Suspect]
     Active Substance: INFLIXIMAB
     Indication: Colitis ulcerative
     Route: 041
  2. AZATHIOPRINE SODIUM [Concomitant]
     Active Substance: AZATHIOPRINE SODIUM
  3. CALCIUM [Concomitant]
     Active Substance: CALCIUM
  4. ESTRADIOL;ESTRIOL;LEVONORGESTREL [Concomitant]
  5. IRON [Concomitant]
     Active Substance: IRON
     Indication: Anaemia
  6. MESALAMINE [Concomitant]
     Active Substance: MESALAMINE
     Route: 054
  7. METHYLPREDNISOLONE [Concomitant]
     Active Substance: METHYLPREDNISOLONE
     Indication: Premedication
  8. PENTASA [Concomitant]
     Active Substance: MESALAMINE
  9. SIMVASTATIN [Concomitant]
     Active Substance: SIMVASTATIN
  10. TYLENOL [Concomitant]
     Active Substance: ACETAMINOPHEN
     Indication: Headache
  11. CHOLECALCIFEROL [Concomitant]
     Active Substance: CHOLECALCIFEROL

REACTIONS (4)
  - Adverse event [Recovered/Resolved]
  - Dizziness [Recovered/Resolved]
  - Intentional product use issue [Recovered/Resolved]
  - Off label use [Recovered/Resolved]
